FAERS Safety Report 15907719 (Version 1)
Quarter: 2019Q1

REPORT INFORMATION
  Report Type: Report from Study
  Country: US (occurrence: US)
  Receive Date: 20190204
  Receipt Date: 20190204
  Transmission Date: 20190417
  Serious: Yes (Death)
  Sender: FDA-Public Use
  Company Number: US-SA-2019SA029090

PATIENT
  Age: 64 Year
  Sex: Female
  Weight: 82.3 kg

DRUGS (3)
  1. FLUDARABINE PHOSPHATE. [Suspect]
     Active Substance: FLUDARABINE PHOSPHATE
     Indication: MYELODYSPLASTIC SYNDROME
     Dosage: UNK UNK, UNK
     Route: 065
     Dates: start: 20131114, end: 20131117
  2. CLOFARABINE. [Suspect]
     Active Substance: CLOFARABINE
     Indication: MYELODYSPLASTIC SYNDROME
     Dosage: UNK UNK, UNK
     Route: 065
     Dates: start: 20131114, end: 20131117
  3. BUSULFAN. [Suspect]
     Active Substance: BUSULFAN
     Indication: MYELODYSPLASTIC SYNDROME
     Dosage: UNK UNK, UNK
     Route: 065
     Dates: start: 20131114, end: 20131117

REACTIONS (1)
  - Pulmonary alveolar haemorrhage [Fatal]

NARRATIVE: CASE EVENT DATE: 20131129
